FAERS Safety Report 11681460 (Version 1)
Quarter: 2015Q4

REPORT INFORMATION
  Report Type: Spontaneous
  Country: US (occurrence: None)
  Receive Date: 20151027
  Receipt Date: 20151027
  Transmission Date: 20160304
  Serious: Yes (Death)
  Sender: FDA-Public Use
  Company Number: 2015000049

PATIENT
  Age: 60 Year
  Sex: Male

DRUGS (3)
  1. NORVENLAFAXINE (VENLAFAXINE HYDROCHLORIDE) [Concomitant]
  2. TRAZODONE [Suspect]
     Active Substance: TRAZODONE HYDROCHLORIDE
     Indication: PRODUCT USED FOR UNKNOWN INDICATION
  3. LAMOTRIGINE (LAMOTRIGINE) [Concomitant]
     Active Substance: LAMOTRIGINE

REACTIONS (2)
  - Asphyxia [None]
  - Completed suicide [None]
